FAERS Safety Report 11503625 (Version 2)
Quarter: 2016Q3

REPORT INFORMATION
  Report Type: Spontaneous
  Country: US (occurrence: US)
  Receive Date: 20150914
  Receipt Date: 20160915
  Transmission Date: 20161109
  Serious: No
  Sender: FDA-Public Use
  Company Number: US-ASTELLAS-2015US026812

PATIENT
  Sex: Male

DRUGS (3)
  1. METFORMIN [Concomitant]
     Active Substance: METFORMIN HYDROCHLORIDE
     Indication: PRODUCT USED FOR UNKNOWN INDICATION
     Dosage: UNK UNK, UNKNOWN FREQ.
     Route: 065
  2. XTANDI [Suspect]
     Active Substance: ENZALUTAMIDE
     Indication: PROSTATE CANCER
     Dosage: 160 MG (4 CAPSULES) ONCE DAILY
     Route: 048
     Dates: start: 20150618
  3. XTANDI [Suspect]
     Active Substance: ENZALUTAMIDE
     Dosage: 80 MG (2 CAPSULES), ONCE DAILY
     Route: 048

REACTIONS (18)
  - Hyperhidrosis [Unknown]
  - Neck pain [Unknown]
  - Drug dose omission [Unknown]
  - Fatigue [Unknown]
  - Memory impairment [Unknown]
  - Nocturia [Unknown]
  - Decreased appetite [Unknown]
  - Hot flush [Unknown]
  - Bone pain [Unknown]
  - Asthenia [Unknown]
  - Insomnia [Unknown]
  - Headache [Unknown]
  - Sleep disorder [Unknown]
  - Adverse event [Unknown]
  - Pain in extremity [Unknown]
  - Paraesthesia [Unknown]
  - Myalgia [Unknown]
  - Pollakiuria [Unknown]
